FAERS Safety Report 6643863-1 (Version None)
Quarter: 2010Q1

REPORT INFORMATION
  Report Type: 
  Country: None (occurrence: None)
  Receive Date: 20100322
  Receipt Date: 20100317
  Transmission Date: 20100710
  Serious: Yes (Death)
  Sender: FDA-Public Use
  Company Number: US-CEPHALON-2010001553

PATIENT
  Age: 39 Year
  Sex: Male

DRUGS (1)
  1. TREANDA [Suspect]
     Indication: HODGKIN'S DISEASE
     Dates: start: 20100301, end: 20100302

REACTIONS (1)
  - MYOCARDIAL INFARCTION [None]
